FAERS Safety Report 20395268 (Version 1)
Quarter: 2022Q1

REPORT INFORMATION
  Report Type: Spontaneous
  Country: US (occurrence: US)
  Receive Date: 20220130
  Receipt Date: 20220130
  Transmission Date: 20220423
  Serious: Yes (Other)
  Sender: FDA-Public Use
  Company Number: US-NOVARTISPH-NVSC2022US020064

PATIENT
  Age: 67 Year
  Sex: Male

DRUGS (3)
  1. RANITIDINE [Suspect]
     Active Substance: RANITIDINE
     Indication: Gastric ulcer
     Dosage: 300 MG,2X DAILY - 1 DAILY AFTER COLON SURGERY,DAILY,2X PER DAY - 1X DAILY AFTER COLON SURGERY
     Route: 048
     Dates: start: 198310, end: 202003
  2. RANITIDINE [Suspect]
     Active Substance: RANITIDINE
     Indication: Gastric ulcer
     Dosage: 300 MG,2X DAILY - 1 DAILY AFTER COLON SURGERY,DAILY,2X PER DAY - 1X DAILY AFTER COLON SURGERY
     Route: 048
     Dates: start: 198310, end: 202003
  3. RANITIDINE [Suspect]
     Active Substance: RANITIDINE
     Indication: Gastric ulcer
     Dosage: STARTED 1X DAILY - 2X PER DAY AFTER COLON SURGERY,DAILY,2X PER DAY - STILL TAKING IT
     Route: 048
     Dates: start: 198310, end: 202012

REACTIONS (2)
  - Colorectal cancer [Recovered/Resolved]
  - Incorrect dose administered [Unknown]

NARRATIVE: CASE EVENT DATE: 20140801
